FAERS Safety Report 7412354-2 (Version None)
Quarter: 2011Q2

REPORT INFORMATION
  Report Type: 
  Country: None (occurrence: None)
  Receive Date: 20110413
  Receipt Date: 20110404
  Transmission Date: 20111010
  Serious: Yes (Other)
  Sender: FDA-Public Use
  Company Number: US-CEPHALON-2011000289

PATIENT
  Sex: Male
  Weight: 100 kg

DRUGS (1)
  1. NUVIGIL [Suspect]
     Indication: NARCOLEPSY
     Route: 048
     Dates: start: 20101012, end: 20101120

REACTIONS (7)
  - SCHIZOPHRENIA, PARANOID TYPE [None]
  - DRUG INEFFECTIVE [None]
  - NERVOUSNESS [None]
  - HALLUCINATION [None]
  - MANIA [None]
  - ANXIETY [None]
  - INSOMNIA [None]
